FAERS Safety Report 6731582-2 (Version None)
Quarter: 2010Q2

REPORT INFORMATION
  Report Type: 
  Country: None (occurrence: None)
  Receive Date: 20100513
  Receipt Date: 20100513
  Transmission Date: 20101027
  Serious: Yes (Hospitalization)
  Sender: FDA-Public Use
  Company Number: None

PATIENT
  Sex: Female
  Weight: 70 kg

DRUGS (2)
  1. CISPLATIN [Suspect]
     Dosage: 127 MG
     Dates: end: 20091218
  2. TAXOL [Suspect]
     Dosage: 228 MG
     Dates: end: 20091217

REACTIONS (12)
  - ACIDOSIS [None]
  - ASTHENIA [None]
  - CATHETER SITE CELLULITIS [None]
  - DEHYDRATION [None]
  - DIZZINESS [None]
  - FALL [None]
  - FATIGUE [None]
  - ISCHAEMIC CARDIOMYOPATHY [None]
  - NEUTROPHIL COUNT DECREASED [None]
  - STRESS CARDIOMYOPATHY [None]
  - TACHYPNOEA [None]
  - VOMITING [None]
